FAERS Safety Report 8475723-8 (Version None)
Quarter: 2012Q2

REPORT INFORMATION
  Report Type: 
  Country: None (occurrence: None)
  Receive Date: 20120628
  Receipt Date: 20120620
  Transmission Date: 20120825
  Serious: Yes (Life-Threatening, Hospitalization)
  Sender: FDA-Public Use
  Company Number: FR-GLAXOSMITHKLINE-B0809358A

PATIENT
  Sex: Female

DRUGS (7)
  1. CYMBALTA [Suspect]
     Indication: PRODUCT USED FOR UNKNOWN INDICATION
     Route: 048
     Dates: end: 20110723
  2. NOCTAMIDE [Concomitant]
     Indication: PRODUCT USED FOR UNKNOWN INDICATION
     Route: 048
  3. MIRTAZAPINE [Concomitant]
     Indication: PRODUCT USED FOR UNKNOWN INDICATION
     Dosage: 15MG UNKNOWN
  4. LAMICTAL [Suspect]
     Indication: PRODUCT USED FOR UNKNOWN INDICATION
     Route: 048
     Dates: end: 20110723
  5. ORAL CONTRACEPTION [Concomitant]
     Indication: CONTRACEPTION
  6. LEXOMIL [Concomitant]
     Indication: PRODUCT USED FOR UNKNOWN INDICATION
     Dosage: .25UNIT PER DAY
  7. ABILIFY [Concomitant]
     Indication: PRODUCT USED FOR UNKNOWN INDICATION
     Dosage: 10MG PER DAY

REACTIONS (17)
  - MYDRIASIS [None]
  - MYOCLONUS [None]
  - HYPERTHERMIA [None]
  - PSYCHOMOTOR RETARDATION [None]
  - MUSCLE SPASTICITY [None]
  - RHABDOMYOLYSIS [None]
  - TREMOR [None]
  - INCOHERENT [None]
  - HEPATOCELLULAR INJURY [None]
  - STUPOR [None]
  - TACHYCARDIA [None]
  - SOMNOLENCE [None]
  - SEROTONIN SYNDROME [None]
  - EXTRAPYRAMIDAL DISORDER [None]
  - HYPERREFLEXIA [None]
  - AGITATION [None]
  - HYPERHIDROSIS [None]
